FAERS Safety Report 8023010-4 (Version None)
Quarter: 2012Q1

REPORT INFORMATION
  Report Type: 
  Country: None (occurrence: None)
  Receive Date: 20120104
  Receipt Date: 20111229
  Transmission Date: 20120608
  Serious: Yes (Hospitalization, Disabling, Other)
  Sender: FDA-Public Use
  Company Number: US-PFIZER INC-2010151218

PATIENT
  Sex: Female
  Weight: 77.551 kg

DRUGS (7)
  1. ALDACTONE [Concomitant]
     Dosage: 50 MG, 2X/DAY
     Route: 048
  2. ZOLOFT [Concomitant]
     Indication: ANXIETY
  3. OXYCODONE [Concomitant]
     Indication: PAIN
     Dosage: 5 MG, (EVERY 6 HRS/PRN)
     Route: 048
  4. ZOLOFT [Concomitant]
     Indication: DEPRESSION
     Dosage: 100 MG, 1X/DAY
     Route: 048
  5. IRON [Suspect]
     Dosage: UNK
  6. OMEPRAZOLE [Concomitant]
     Dosage: 20 MG, 1X/DAY
     Route: 048
  7. SOMAVERT [Suspect]
     Indication: ACROMEGALY
     Dosage: 10 MG, DAILY
     Route: 058
     Dates: start: 20101110, end: 20110113

REACTIONS (27)
  - AMMONIA INCREASED [None]
  - FATIGUE [None]
  - ACNE [None]
  - PAIN [None]
  - INJECTION SITE ERYTHEMA [None]
  - ASTHENIA [None]
  - ARTHRALGIA [None]
  - WEIGHT INCREASED [None]
  - MENTAL STATUS CHANGES [None]
  - BACK PAIN [None]
  - NAUSEA [None]
  - JAUNDICE HEPATOCELLULAR [None]
  - INJECTION SITE PRURITUS [None]
  - HYPERHIDROSIS [None]
  - HEPATIC ENCEPHALOPATHY [None]
  - HEPATIC ENZYME INCREASED [None]
  - HAEMOCHROMATOSIS [None]
  - YELLOW SKIN [None]
  - ASCITES [None]
  - CHROMATURIA [None]
  - MEMORY IMPAIRMENT [None]
  - TREMOR [None]
  - BLOOD GROWTH HORMONE INCREASED [None]
  - MYALGIA [None]
  - HYPERSENSITIVITY [None]
  - HEPATITIS [None]
  - TONGUE DISORDER [None]
